FAERS Safety Report 13350062 (Version 1)
Quarter: 2017Q1

REPORT INFORMATION
  Report Type: Spontaneous
  Country: US (occurrence: US)
  Receive Date: 20170320
  Receipt Date: 20170320
  Transmission Date: 20170429
  Serious: No
  Sender: FDA-Public Use
  Company Number: US-WARNER CHILCOTT, LLC-1064410

PATIENT
  Age: 45 Year
  Sex: Female
  Weight: 54.14 kg

DRUGS (1)
  1. DELZICOL [Suspect]
     Active Substance: MESALAMINE
     Indication: INFLAMMATORY BOWEL DISEASE
     Route: 048
     Dates: start: 2015

REACTIONS (1)
  - Gastrooesophageal reflux disease [Not Recovered/Not Resolved]
